FAERS Safety Report 13250128 (Version 1)
Quarter: 2017Q1

REPORT INFORMATION
  Report Type: Spontaneous
  Country: US (occurrence: US)
  Receive Date: 20170218
  Receipt Date: 20170218
  Transmission Date: 20170428
  Serious: No
  Sender: FDA-Public Use
  Company Number: US-ALLERGAN-1667040US

PATIENT
  Age: 90 Year
  Sex: Female

DRUGS (7)
  1. LISINOPRIL. [Concomitant]
     Active Substance: LISINOPRIL
     Indication: HYPERTENSION
     Dosage: 10 MG, UNK
  2. SYNTHROID [Concomitant]
     Active Substance: LEVOTHYROXINE SODIUM
     Indication: THYROID DISORDER
     Dosage: UNK
  3. RESTASIS [Suspect]
     Active Substance: CYCLOSPORINE
     Indication: DRY EYE
     Dosage: 2 GTT, UNK
     Route: 047
     Dates: start: 201608
  4. PROCRIT [Concomitant]
     Active Substance: ERYTHROPOIETIN
     Indication: FULL BLOOD COUNT DECREASED
     Dosage: UNK UNK, Q2WEEKS
  5. REFRESH P.M. [Concomitant]
     Active Substance: MINERAL OIL\PETROLATUM
     Indication: DRY EYE
     Dosage: UNK UNK, QHS
     Route: 047
  6. TEMAZEPAM. [Concomitant]
     Active Substance: TEMAZEPAM
     Indication: INSOMNIA
     Dosage: UNK
  7. TOBRAMYCIN. [Concomitant]
     Active Substance: TOBRAMYCIN
     Indication: CORNEAL ABRASION

REACTIONS (4)
  - Lacrimation increased [Not Recovered/Not Resolved]
  - Eye pain [Not Recovered/Not Resolved]
  - Drug dose omission [Unknown]
  - Eye swelling [Not Recovered/Not Resolved]

NARRATIVE: CASE EVENT DATE: 20160825
